FAERS Safety Report 25040007 (Version 2)
Quarter: 2025Q2

REPORT INFORMATION
  Report Type: Report from Study
  Country: PR (occurrence: US)
  Receive Date: 20250305
  Receipt Date: 20250508
  Transmission Date: 20250717
  Serious: No
  Sender: SANDOZ
  Company Number: PR-SANDOZ-SDZ2024US107781

PATIENT
  Age: 14 Year
  Sex: Male
  Weight: 37 kg

DRUGS (4)
  1. OMNITROPE [Suspect]
     Active Substance: SOMATROPIN
     Indication: Short stature
     Route: 058
     Dates: start: 20230302
  2. OMNITROPE [Suspect]
     Active Substance: SOMATROPIN
     Indication: Short stature
     Route: 058
     Dates: start: 20230302
  3. OMNITROPE [Suspect]
     Active Substance: SOMATROPIN
     Route: 058
     Dates: start: 202305
  4. OMNITROPE [Suspect]
     Active Substance: SOMATROPIN
     Route: 058
     Dates: start: 202305

REACTIONS (4)
  - Drug ineffective [Unknown]
  - Circumstance or information capable of leading to medication error [Unknown]
  - Product storage error [Unknown]
  - Device breakage [Unknown]

NARRATIVE: CASE EVENT DATE: 20241230
